FAERS Safety Report 8311585-7 (Version None)
Quarter: 2012Q2

REPORT INFORMATION
  Report Type: 
  Country: None (occurrence: None)
  Receive Date: 20120425
  Receipt Date: 20120419
  Transmission Date: 20120825
  Serious: Yes (Hospitalization, Disabling)
  Sender: FDA-Public Use
  Company Number: US-MERCK-1110USA04115

PATIENT
  Age: 66 Year
  Sex: Female

DRUGS (7)
  1. FOSAMAX [Suspect]
     Route: 048
  2. FOSAMAX [Suspect]
     Route: 048
     Dates: start: 20010101, end: 20091201
  3. FOSAMAX [Suspect]
     Indication: OSTEOPOROSIS
     Route: 048
     Dates: start: 19960101, end: 20010101
  4. FOSAMAX [Suspect]
     Indication: OSTEOPOROSIS PROPHYLAXIS
     Route: 048
  5. VITAMIN D (UNSPECIFIED) [Concomitant]
     Indication: OSTEOPOROSIS
     Route: 065
     Dates: start: 20010101
  6. CALCIUM (UNSPECIFIED) [Concomitant]
     Indication: OSTEOPOROSIS
     Route: 065
     Dates: start: 20010101
  7. ALENDRONATE SODIUM [Suspect]
     Route: 048
     Dates: start: 20081001, end: 20090601

REACTIONS (23)
  - HAEMORRHAGIC ANAEMIA [None]
  - WRIST FRACTURE [None]
  - VITAMIN D DEFICIENCY [None]
  - LIMB ASYMMETRY [None]
  - HYPERCHOLESTEROLAEMIA [None]
  - PATELLOFEMORAL PAIN SYNDROME [None]
  - OEDEMA PERIPHERAL [None]
  - RADICULITIS LUMBOSACRAL [None]
  - NAUSEA [None]
  - LOW TURNOVER OSTEOPATHY [None]
  - ECZEMA [None]
  - FEMUR FRACTURE [None]
  - URINARY TRACT INFECTION [None]
  - SKIN LESION [None]
  - PROTEINURIA [None]
  - GAIT DISTURBANCE [None]
  - DERMATITIS CONTACT [None]
  - FALL [None]
  - MUSCLE STRAIN [None]
  - CELLULITIS [None]
  - MOVEMENT DISORDER [None]
  - VOMITING [None]
  - CONTUSION [None]
